FAERS Safety Report 9476993 (Version 1)
Quarter: 2013Q3

REPORT INFORMATION
  Report Type: Spontaneous
  Country: ES (occurrence: ES)
  Receive Date: 20130826
  Receipt Date: 20130826
  Transmission Date: 20140515
  Serious: Yes (Death, Other)
  Sender: FDA-Public Use
  Company Number: ES-BAXTER-2013BAX033278

PATIENT
  Age: 28 Year
  Sex: Male

DRUGS (11)
  1. KIOVIG [Suspect]
     Indication: APLASIA PURE RED CELL
     Dosage: 400 MG/KG/DAY
     Route: 042
  2. KIOVIG [Suspect]
     Indication: AUTOIMMUNE HAEMOLYTIC ANAEMIA
  3. KIOVIG [Suspect]
     Indication: OFF LABEL USE
  4. BORTEZOMIB [Suspect]
     Indication: APLASIA PURE RED CELL
     Route: 042
  5. BORTEZOMIB [Suspect]
     Indication: AUTOIMMUNE HAEMOLYTIC ANAEMIA
  6. ECULIZUMAB [Suspect]
     Indication: APLASIA PURE RED CELL
     Route: 042
  7. ECULIZUMAB [Suspect]
     Indication: AUTOIMMUNE HAEMOLYTIC ANAEMIA
  8. RITUXIMAB [Suspect]
     Indication: APLASIA PURE RED CELL
     Route: 042
  9. RITUXIMAB [Suspect]
     Indication: AUTOIMMUNE HAEMOLYTIC ANAEMIA
  10. PREDNISONE [Suspect]
     Indication: APLASIA PURE RED CELL
     Route: 048
  11. PREDNISONE [Suspect]
     Indication: AUTOIMMUNE HAEMOLYTIC ANAEMIA

REACTIONS (2)
  - Haemolysis [Fatal]
  - Drug ineffective [Not Recovered/Not Resolved]
